FAERS Safety Report 21520726 (Version 3)
Quarter: 2022Q4

REPORT INFORMATION
  Report Type: Spontaneous
  Country: US (occurrence: US)
  Receive Date: 20221028
  Receipt Date: 20221128
  Transmission Date: 20230112
  Serious: No
  Sender: FDA-Public Use
  Company Number: US-PFIZER INC-202201212333

PATIENT
  Age: 11 Year
  Sex: Male
  Weight: 43.09 kg

DRUGS (1)
  1. GENOTROPIN [Suspect]
     Active Substance: SOMATROPIN
     Indication: Growth hormone deficiency
     Dosage: 1.2 MG, DAILY

REACTIONS (2)
  - Device use issue [Not Recovered/Not Resolved]
  - Device power source issue [Not Recovered/Not Resolved]
